FAERS Safety Report 23875485 (Version 1)
Quarter: 2024Q2

REPORT INFORMATION
  Report Type: Spontaneous
  Country: US (occurrence: None)
  Receive Date: 20240520
  Receipt Date: 20240520
  Transmission Date: 20240716
  Serious: Yes (Hospitalization)
  Sender: FDA-Public Use
  Company Number: None

PATIENT
  Sex: Male

DRUGS (6)
  1. TOBRAMYCIN [Suspect]
     Active Substance: TOBRAMYCIN\TOBRAMYCIN SULFATE
     Indication: Crohn^s disease
     Dosage: OTHER QUANTITY : INHALE 1 VALVE;?FREQUENCY : TWICE A DAY;?
     Route: 055
  2. BACLOFEN [Concomitant]
     Active Substance: BACLOFEN
  3. BETHKIS [Concomitant]
     Active Substance: TOBRAMYCIN
  4. EPIDIOLEX SOL [Concomitant]
  5. VIGADRONE [Concomitant]
     Active Substance: VIGABATRIN
  6. ZONISAMIDE [Concomitant]
     Active Substance: ZONISAMIDE

REACTIONS (3)
  - Influenza [None]
  - Renal injury [None]
  - Liver injury [None]
